FAERS Safety Report 21229774 (Version 1)
Quarter: 2022Q3

REPORT INFORMATION
  Report Type: Spontaneous
  Country: NL (occurrence: NL)
  Receive Date: 20220818
  Receipt Date: 20220818
  Transmission Date: 20221026
  Serious: Yes (Other)
  Sender: FDA-Public Use
  Company Number: NL-ELI_LILLY_AND_COMPANY-NL202208004450

PATIENT
  Age: 56 Year
  Sex: Female

DRUGS (3)
  1. ZYPADHERA [Suspect]
     Active Substance: OLANZAPINE PAMOATE
     Indication: Product used for unknown indication
     Dosage: 300 MG, OTHER (EVERY 4 WEEKS)
     Route: 065
  2. ZYPADHERA [Suspect]
     Active Substance: OLANZAPINE PAMOATE
     Indication: Product used for unknown indication
     Dosage: 300 MG, OTHER (EVERY 4 WEEKS)
     Route: 065
  3. ZYPADHERA [Suspect]
     Active Substance: OLANZAPINE PAMOATE
     Indication: Product used for unknown indication
     Dosage: 300 MG, OTHER (EVERY 4 WEEKS)
     Route: 065

REACTIONS (2)
  - Post-injection delirium sedation syndrome [Unknown]
  - Post-injection delirium sedation syndrome [Unknown]

NARRATIVE: CASE EVENT DATE: 20210801
